FAERS Safety Report 4706370-9 (Version None)
Quarter: 2005Q3

REPORT INFORMATION
  Report Type: 
  Country: None (occurrence: None)
  Receive Date: 20050705
  Receipt Date: 20050624
  Transmission Date: 20060218
  Serious: Yes (Hospitalization)
  Sender: FDA-Public Use
  Company Number: DE-BRISTOL-MYERS SQUIBB COMPANY-13014972

PATIENT
  Age: 24 Year
  Sex: Female

DRUGS (2)
  1. ABILIFY [Suspect]
     Indication: SCHIZOPHRENIA
     Dosage: INITIATED ON 10MG ON 09-FEB/INCREASED TO 15MG FROM 10-FEB TO 17-FEB/DECREASED TO 10MG FROM 18 TO 25
     Dates: start: 20050209, end: 20050225
  2. TAVOR [Suspect]
     Indication: SCHIZOPHRENIA
     Dosage: VARYING DOSAGES FROM 3.5 MG ON 09-FEB TO 0.5 MG ON 21-FEB-05
     Dates: start: 20050209

REACTIONS (2)
  - PHOTOPSIA [None]
  - VISION BLURRED [None]
